FAERS Safety Report 21871567 (Version 2)
Quarter: 2023Q1

REPORT INFORMATION
  Report Type: Spontaneous
  Country: BR (occurrence: BR)
  Receive Date: 20230117
  Receipt Date: 20230217
  Transmission Date: 20230418
  Serious: Yes (Death, Hospitalization, Other)
  Sender: FDA-Public Use
  Company Number: BR-002147023-NVSC2022BR264725

PATIENT
  Age: 50 Year
  Sex: Male
  Weight: 86 kg

DRUGS (6)
  1. VOTRIENT [Suspect]
     Active Substance: PAZOPANIB HYDROCHLORIDE
     Indication: Spindle cell sarcoma
     Dosage: 2 DOSAGE FORM, QD, (60 COATED TABLETS)
     Route: 065
     Dates: start: 20220927
  2. VOTRIENT [Suspect]
     Active Substance: PAZOPANIB HYDROCHLORIDE
     Indication: Sarcoma
     Dosage: 2 DOSAGE FORM, QD (2 TABLETS PER DAY, MANUFACTURING DATE: 21 APR 2022)
     Route: 065
     Dates: start: 20220927
  3. VOTRIENT [Suspect]
     Active Substance: PAZOPANIB HYDROCHLORIDE
     Indication: Metastases to lung
     Dosage: 2 DOSAGE FORM, QD
     Route: 048
     Dates: start: 202209, end: 20230116
  4. MIRTAZAPINE [Suspect]
     Active Substance: MIRTAZAPINE
     Indication: Product used for unknown indication
     Dosage: 1 DOSAGE FORM, QD
     Route: 065
  5. MIRTAZAPINE [Suspect]
     Active Substance: MIRTAZAPINE
     Dosage: 1 DOSAGE FORM, QD
     Route: 048
     Dates: start: 202209, end: 20230116
  6. CODEINE [Concomitant]
     Active Substance: CODEINE
     Indication: Product used for unknown indication
     Dosage: 3 DOSAGE FORM, QD
     Route: 065

REACTIONS (10)
  - Nodule [Fatal]
  - Intensive care unit delirium [Fatal]
  - Respiratory failure [Fatal]
  - Spindle cell sarcoma [Fatal]
  - Metastases to lung [Fatal]
  - Malignant neoplasm progression [Fatal]
  - Inflammation [Not Recovered/Not Resolved]
  - Pulmonary oedema [Not Recovered/Not Resolved]
  - Pain [Not Recovered/Not Resolved]
  - Product use in unapproved indication [Unknown]

NARRATIVE: CASE EVENT DATE: 20221201
